FAERS Safety Report 8233078-8 (Version None)
Quarter: 2012Q1

REPORT INFORMATION
  Report Type: 
  Country: None (occurrence: None)
  Receive Date: 20120326
  Receipt Date: 20120320
  Transmission Date: 20120608
  Serious: No
  Sender: FDA-Public Use
  Company Number: US-BIOGENIDEC-2012BI009825

PATIENT
  Sex: Female

DRUGS (3)
  1. TYSABRI [Suspect]
     Indication: MULTIPLE SCLEROSIS
     Route: 042
     Dates: start: 20080103, end: 20101006
  2. TYSABRI [Suspect]
     Route: 042
     Dates: start: 20110411, end: 20110411
  3. TYSABRI [Suspect]
     Route: 042
     Dates: start: 20111209

REACTIONS (1)
  - VASCULAR ACCESS COMPLICATION [None]
